FAERS Safety Report 9893466 (Version 2)
Quarter: 2014Q1

REPORT INFORMATION
  Report Type: Spontaneous
  Country: FR (occurrence: FR)
  Receive Date: 20140213
  Receipt Date: 20140317
  Transmission Date: 20141002
  Serious: Yes (Life-Threatening, Other)
  Sender: FDA-Public Use
  Company Number: FR-BRISTOL-MYERS SQUIBB COMPANY-20171021

PATIENT
  Age: 57 Year
  Sex: Male
  Weight: 57 kg

DRUGS (1)
  1. ERBITUX [Suspect]
     Indication: HEAD AND NECK CANCER
     Route: 042
     Dates: start: 20140115, end: 2014

REACTIONS (3)
  - Gamma-glutamyltransferase increased [Recovered/Resolved]
  - Aspartate aminotransferase increased [Recovered/Resolved]
  - Alanine aminotransferase increased [Recovered/Resolved]
